FAERS Safety Report 13830857 (Version 1)
Quarter: 2017Q3

REPORT INFORMATION
  Report Type: Spontaneous
  Country: JP (occurrence: JP)
  Receive Date: 20170803
  Receipt Date: 20170803
  Transmission Date: 20171127
  Serious: Yes (Other)
  Sender: FDA-Public Use
  Company Number: JP-JNJFOC-20170724879

PATIENT
  Age: 6 Decade
  Sex: Female

DRUGS (1)
  1. TOPINA [Suspect]
     Active Substance: TOPIRAMATE
     Indication: PRODUCT USED FOR UNKNOWN INDICATION
     Route: 048

REACTIONS (6)
  - Hydronephrosis [Unknown]
  - Nephrolithiasis [Unknown]
  - Kidney angiomyolipoma [Unknown]
  - Nephrolithiasis [Unknown]
  - Renal atrophy [Unknown]
  - Ureterolithiasis [Unknown]

NARRATIVE: CASE EVENT DATE: 2009
